FAERS Safety Report 5672634-8 (Version None)
Quarter: 2008Q1

REPORT INFORMATION
  Report Type: 
  Country: None (occurrence: None)
  Receive Date: 20080317
  Receipt Date: 20080307
  Transmission Date: 20080703
  Serious: Yes (Other)
  Sender: FDA-Public Use
  Company Number: 18655

PATIENT
  Age: 4 Year
  Sex: Female

DRUGS (10)
  1. CYTARABINE [Suspect]
     Indication: MALIGNANT HISTIOCYTOSIS
  2. METHOTREXATE [Suspect]
     Indication: MALIGNANT HISTIOCYTOSIS
  3. VINBLASTINE SULFATE [Suspect]
     Indication: MALIGNANT HISTIOCYTOSIS
  4. VINCRISTINE [Suspect]
     Indication: MALIGNANT HISTIOCYTOSIS
  5. PREDNISONE TAB [Suspect]
     Indication: MALIGNANT HISTIOCYTOSIS
  6. VINBLASTINE SULFATE [Suspect]
     Indication: MALIGNANT HISTIOCYTOSIS
  7. MERCAPTOPURINE [Suspect]
     Indication: MALIGNANT HISTIOCYTOSIS
  8. ETOPOSIDE [Suspect]
     Indication: MALIGNANT HISTIOCYTOSIS
  9. CLADRIBINE [Suspect]
     Indication: MALIGNANT HISTIOCYTOSIS
  10. L-ASPARAGINASE [Suspect]
     Indication: MALIGNANT HISTIOCYTOSIS

REACTIONS (18)
  - ANAPHYLACTIC REACTION [None]
  - B-CELL LYMPHOMA [None]
  - BONE LESION [None]
  - DISEASE COMPLICATION [None]
  - DISEASE RECURRENCE [None]
  - DRUG EFFECT DECREASED [None]
  - EPSTEIN-BARR VIRUS INFECTION [None]
  - GINGIVAL HYPERPLASIA [None]
  - HEPATOMEGALY [None]
  - INTERSTITIAL LUNG DISEASE [None]
  - LANGERHANS' CELL GRANULOMATOSIS [None]
  - LYMPHADENOPATHY [None]
  - LYMPHOPROLIFERATIVE DISORDER [None]
  - MALIGNANT NEOPLASM PROGRESSION [None]
  - PULMONARY MYCOSIS [None]
  - PYREXIA [None]
  - SINUSITIS FUNGAL [None]
  - SPLENOMEGALY [None]
